FAERS Safety Report 7659288-6 (Version None)
Quarter: 2011Q3

REPORT INFORMATION
  Report Type: 
  Country: None (occurrence: None)
  Receive Date: 20110805
  Receipt Date: 20110722
  Transmission Date: 20111222
  Serious: Yes (Hospitalization)
  Sender: FDA-Public Use
  Company Number: NL-ROCHE-786153

PATIENT
  Sex: Male

DRUGS (4)
  1. EPIRUBICIN [Suspect]
     Indication: GASTRIC CANCER
     Route: 042
     Dates: end: 20110622
  2. CISPLATIN [Suspect]
     Indication: GASTRIC CANCER
     Route: 042
     Dates: end: 20110622
  3. CAPECITABINE [Suspect]
     Indication: GASTRIC CANCER
     Route: 048
     Dates: end: 20110622
  4. ONDANSETRON [Concomitant]
     Dates: start: 20110614

REACTIONS (5)
  - PYREXIA [None]
  - BILE DUCT OBSTRUCTION [None]
  - NAUSEA [None]
  - BILIARY TRACT INFECTION [None]
  - VOMITING [None]
